FAERS Safety Report 9543003 (Version 1)
Quarter: 2013Q2

REPORT INFORMATION
  Report Type: Spontaneous
  Country: US (occurrence: None)
  Receive Date: 20130524
  Receipt Date: 20130524
  Transmission Date: 20140414
  Serious: Yes (Other)
  Sender: FDA-Public Use
  Company Number: HEH2102US025623

PATIENT
  Sex: Female

DRUGS (1)
  1. GILENYA [Suspect]
     Indication: MULTIPLE SCLEROSIS

REACTIONS (6)
  - Nasal congestion [None]
  - Sneezing [None]
  - Pyrexia [None]
  - Nasopharyngitis [None]
  - Influenza [None]
  - Cough [None]
